FAERS Safety Report 9114881 (Version 1)
Quarter: 2013Q1

REPORT INFORMATION
  Report Type: Spontaneous
  Country: US (occurrence: None)
  Receive Date: 20130220
  Receipt Date: 20130220
  Transmission Date: 20140127
  Serious: Yes (Other)
  Sender: FDA-Public Use
  Company Number: None

PATIENT
  Age: 60 Year
  Sex: Male
  Weight: 83.92 kg

DRUGS (1)
  1. BYSTOLIC [Suspect]
     Indication: HYPERTENSION
     Route: 048
     Dates: start: 20130109, end: 20130112

REACTIONS (8)
  - Hypoaesthesia [None]
  - Paraesthesia [None]
  - Dizziness [None]
  - Vision blurred [None]
  - Chest pain [None]
  - Visual impairment [None]
  - Blood triglycerides increased [None]
  - Hepatic enzyme increased [None]
